FAERS Safety Report 10214170 (Version 2)
Quarter: 2014Q2

REPORT INFORMATION
  Report Type: Spontaneous
  Country: US (occurrence: US)
  Receive Date: 20140603
  Receipt Date: 20140611
  Transmission Date: 20141212
  Serious: No
  Sender: FDA-Public Use
  Company Number: US-PFIZER INC-2014148517

PATIENT
  Age: 65 Year
  Sex: Female
  Weight: 54.88 kg

DRUGS (11)
  1. XELJANZ [Suspect]
     Dosage: UNK
     Dates: start: 201405, end: 20140521
  2. AMOXICILLIN [Concomitant]
     Dosage: UNK
  3. SULPHASALAZINE [Concomitant]
     Dosage: UNK, 2X/DAY
  4. CELEBREX [Concomitant]
     Dosage: UNK, 1X/DAY
  5. VITAMIN D [Concomitant]
     Dosage: UNK, 1X/DAY
  6. OMEPRAZOLE [Concomitant]
     Indication: GASTROOESOPHAGEAL REFLUX DISEASE
     Dosage: UNK
  7. PROLIA [Concomitant]
     Dosage: UNK, 1X/ 6 MONTHS
  8. FOLIC ACID [Concomitant]
     Dosage: 1 MG, 1X/DAY
  9. METHOTREXATE [Concomitant]
     Dosage: UNK, 8X/WEEK
     Dates: end: 20140521
  10. HYDROXYCHLOROQUINE [Concomitant]
     Dosage: 200 MG, 2X/DAY
  11. PREDNISONE [Concomitant]
     Dosage: 5 MG, 1X/DAY

REACTIONS (1)
  - Tooth disorder [Unknown]
